FAERS Safety Report 7034865-4 (Version None)
Quarter: 2010Q4

REPORT INFORMATION
  Report Type: 
  Country: None (occurrence: None)
  Receive Date: 20101008
  Receipt Date: 20100930
  Transmission Date: 20110411
  Serious: Yes (Other)
  Sender: FDA-Public Use
  Company Number: GB-US-EMD SERONO, INC.-230079J09GBR

PATIENT
  Sex: Male

DRUGS (3)
  1. REBIF [Suspect]
     Indication: PRODUCT USED FOR UNKNOWN INDICATION
     Route: 058
     Dates: start: 20080301, end: 20090923
  2. REBIF [Suspect]
     Dates: start: 20091016, end: 20091201
  3. COPAXONE [Concomitant]
     Dates: start: 20100624

REACTIONS (3)
  - BLOOD TEST ABNORMAL [None]
  - INFLUENZA LIKE ILLNESS [None]
  - NEUTROPHIL COUNT DECREASED [None]
